FAERS Safety Report 17638396 (Version 2)
Quarter: 2021Q2

REPORT INFORMATION
  Report Type: Spontaneous
  Country: US (occurrence: US)
  Receive Date: 20200407
  Receipt Date: 20210510
  Transmission Date: 20210716
  Serious: No
  Sender: FDA-Public Use
  Company Number: US-AUROBINDO-AUR-APL-2020-011656

PATIENT
  Age: 15 Year
  Sex: Male

DRUGS (1)
  1. GUAIFENESINANDDEXTROMETHORPHAN1200/60MGEXTENDEDRELEASETABLET OTC [Suspect]
     Active Substance: DEXTROMETHORPHAN\GUAIFENESIN
     Indication: PRODUCT USED FOR UNKNOWN INDICATION
     Dosage: UNK
     Route: 065

REACTIONS (6)
  - Dizziness [Unknown]
  - Palpitations [Unknown]
  - Tremor [Unknown]
  - Dysstasia [Unknown]
  - Nausea [Unknown]
  - Drug ineffective [Unknown]

NARRATIVE: CASE EVENT DATE: 20200226
